FAERS Safety Report 23129175 (Version 1)
Quarter: 2023Q4

REPORT INFORMATION
  Report Type: Spontaneous
  Country: US (occurrence: None)
  Receive Date: 20231030
  Receipt Date: 20231030
  Transmission Date: 20240109
  Serious: No
  Sender: FDA-Public Use
  Company Number: None

PATIENT
  Age: 67 Year
  Sex: Female
  Weight: 65.25 kg

DRUGS (4)
  1. LUBRICANT EYE DROPS [Suspect]
     Active Substance: POLYETHYLENE GLYCOL 400\PROPYLENE GLYCOL
     Indication: Dry eye
     Dosage: OTHER QUANTITY : 1 DROP(S);?FREQUENCY : TWICE A DAY;?
     Route: 047
     Dates: start: 20230915, end: 20231030
  2. VITAMIN D [Concomitant]
     Active Substance: VITAMIN D NOS
  3. Bio identical hormone cream [Concomitant]
  4. MIRALAX [Concomitant]
     Active Substance: POLYETHYLENE GLYCOL 3350

REACTIONS (3)
  - Tinnitus [None]
  - Ear disorder [None]
  - Photosensitivity reaction [None]

NARRATIVE: CASE EVENT DATE: 20231001
